FAERS Safety Report 25253227 (Version 3)
Quarter: 2025Q3

REPORT INFORMATION
  Report Type: Report from Study
  Country: US (occurrence: US)
  Receive Date: 20250430
  Receipt Date: 20250717
  Transmission Date: 20251020
  Serious: No
  Sender: ACADIA PHARMACEUTICALS
  Company Number: US-ACADIA PHARMACEUTICALS INC.-ACA-2025-PIM-004822

PATIENT
  Sex: Male

DRUGS (7)
  1. NUPLAZID [Suspect]
     Active Substance: PIMAVANSERIN TARTRATE
     Indication: Parkinson^s disease psychosis
     Dosage: 34 MILLIGRAM, QD
     Route: 048
     Dates: start: 20230531
  2. AMLODIPINE [Concomitant]
     Active Substance: AMLODIPINE BESYLATE
  3. BELSOMRA [Concomitant]
     Active Substance: SUVOREXANT
  4. OMEPRAZOLE [Concomitant]
     Active Substance: OMEPRAZOLE
  5. PRAVASTATIN [Concomitant]
     Active Substance: PRAVASTATIN
  6. RASAGILINE [Concomitant]
     Active Substance: RASAGILINE
  7. TAMSULOSIN [Concomitant]
     Active Substance: TAMSULOSIN

REACTIONS (1)
  - Product dose omission issue [Unknown]
